FAERS Safety Report 7909486-9 (Version None)
Quarter: 2011Q4

REPORT INFORMATION
  Report Type: 
  Country: None (occurrence: None)
  Receive Date: 20111111
  Receipt Date: 20111102
  Transmission Date: 20120403
  Serious: Yes (Hospitalization)
  Sender: FDA-Public Use
  Company Number: CA-BRISTOL-MYERS SQUIBB COMPANY-16202152

PATIENT
  Age: 49 Year
  Sex: Male
  Weight: 38 kg

DRUGS (9)
  1. CISPLATIN [Suspect]
     Indication: HEAD AND NECK CANCER
     Dosage: LAST DOSE:11AUG11
     Route: 042
     Dates: start: 20110526
  2. FLUOROURACIL [Suspect]
     Indication: HEAD AND NECK CANCER
     Dosage: LAST DOSE:11AUG11
     Route: 042
     Dates: start: 20110526
  3. POTASSIUM [Concomitant]
     Indication: HYPOKALAEMIA
     Dates: start: 20111006
  4. FENTANYL [Concomitant]
     Indication: PAIN
     Dates: start: 20110829
  5. MAGNESIUM [Concomitant]
     Indication: HYPOMAGNESAEMIA
     Dates: start: 20110908
  6. CETUXIMAB [Suspect]
     Indication: HEAD AND NECK CANCER
     Dosage: 250MG/M2 DAY 1,8,15. 16JUN11-19OCT11 400MG/M2 DAY1 OF CYCLE1.26MAY11
     Route: 042
     Dates: start: 20110526
  7. ZOLOFT [Concomitant]
     Indication: ANXIETY
     Dates: start: 20110701
  8. DILAUDID [Concomitant]
     Indication: PAIN
     Dates: start: 20101201
  9. LOVENOX [Concomitant]
     Indication: PULMONARY EMBOLISM
     Dates: start: 20110903, end: 20111021

REACTIONS (1)
  - ANAEMIA [None]
